FAERS Safety Report 18344550 (Version 1)
Quarter: 2020Q4

REPORT INFORMATION
  Report Type: Spontaneous
  Country: US (occurrence: US)
  Receive Date: 20201005
  Receipt Date: 20201005
  Transmission Date: 20210114
  Serious: Yes (Other)
  Sender: FDA-Public Use
  Company Number: None

PATIENT
  Age: 43 Year
  Sex: Male
  Weight: 39.1 kg

DRUGS (1)
  1. AXICABTAGENE CILOLEUCEL [Suspect]
     Active Substance: AXICABTAGENE CILOLEUCEL
     Indication: DIFFUSE LARGE B-CELL LYMPHOMA
     Dosage: ?          OTHER FREQUENCY:ONCE;?
     Route: 042
     Dates: start: 20200826, end: 20200826

REACTIONS (9)
  - Hypotension [None]
  - Bacillus infection [None]
  - Sedation [None]
  - Erythema [None]
  - Febrile neutropenia [None]
  - Delirium [None]
  - Purulent discharge [None]
  - Agitation [None]
  - Disease progression [None]

NARRATIVE: CASE EVENT DATE: 20200828
